FAERS Safety Report 24409686 (Version 2)
Quarter: 2024Q4

REPORT INFORMATION
  Report Type: Spontaneous
  Country: US (occurrence: US)
  Receive Date: 20241008
  Receipt Date: 20241014
  Transmission Date: 20250115
  Serious: Yes (Life-Threatening, Hospitalization, Other)
  Sender: CIPLA
  Company Number: US-CIPLA LTD.-2024US10971

PATIENT

DRUGS (2)
  1. AMLODIPINE [Suspect]
     Active Substance: AMLODIPINE BESYLATE
     Dosage: UNK (TOXIC INGESTION)
     Route: 048
  2. ARIPIPRAZOLE [Suspect]
     Active Substance: ARIPIPRAZOLE
     Dosage: UNK (TOXIC INGESTION)
     Route: 048

REACTIONS (6)
  - Overdose [Unknown]
  - Multiple organ dysfunction syndrome [Unknown]
  - Vasoplegia syndrome [Unknown]
  - Hypocalcaemia [Recovering/Resolving]
  - Aspiration [Unknown]
  - Sepsis [Recovering/Resolving]
